FAERS Safety Report 16988804 (Version 1)
Quarter: 2019Q4

REPORT INFORMATION
  Report Type: Spontaneous
  Country: US (occurrence: US)
  Receive Date: 20191104
  Receipt Date: 20191104
  Transmission Date: 20200122
  Serious: No
  Sender: FDA-Public Use
  Company Number: US-AUROBINDO-AUR-APL-2019-003548

PATIENT

DRUGS (1)
  1. ESCITALOPRAM TABLETS USP 5MG [Suspect]
     Active Substance: ESCITALOPRAM OXALATE
     Indication: DEPRESSION
     Dosage: 2.5 MILLIGRAM
     Route: 065
     Dates: start: 20190115

REACTIONS (9)
  - Personality change [Unknown]
  - Asthenia [Unknown]
  - Dizziness [Unknown]
  - Prescribed underdose [Unknown]
  - Anxiety [Unknown]
  - Rhinorrhoea [Unknown]
  - Insomnia [Unknown]
  - Tremor [Unknown]
  - Dry mouth [Unknown]
